FAERS Safety Report 9228169 (Version 1)
Quarter: 2013Q1

REPORT INFORMATION
  Report Type: Spontaneous
  Country: US (occurrence: None)
  Receive Date: 20121012
  Receipt Date: 20121012
  Transmission Date: 20140127
  Serious: Yes (Other)
  Sender: FDA-Public Use
  Company Number: 2012SP026084

PATIENT
  Age: 50 Year
  Sex: Female

DRUGS (1)
  1. TEMODAR ( TEMOZOLOMIDE) CAPSULE [Suspect]
     Indication: BRAIN NEOPLASM MALIGNANT
     Route: 048

REACTIONS (1)
  - Full blood count decreased [None]
